FAERS Safety Report 22972148 (Version 3)
Quarter: 2023Q4

REPORT INFORMATION
  Report Type: Spontaneous
  Country: US (occurrence: US)
  Receive Date: 20230922
  Receipt Date: 20231103
  Transmission Date: 20240109
  Serious: Yes (Hospitalization)
  Sender: FDA-Public Use
  Company Number: US-drreddys-SPO/USA/23/0176849

PATIENT
  Age: 48 Year
  Sex: Male

DRUGS (1)
  1. CLOZAPINE [Suspect]
     Active Substance: CLOZAPINE
     Indication: Product used for unknown indication

REACTIONS (8)
  - Hospitalisation [Unknown]
  - Lymphocyte count increased [Recovered/Resolved]
  - Neutrophil count increased [Recovering/Resolving]
  - Monocyte count increased [Recovered/Resolved]
  - White blood cell count increased [Recovering/Resolving]
  - Haematocrit increased [Recovering/Resolving]
  - Mean cell haemoglobin decreased [Unknown]
  - Red blood cell count increased [Recovering/Resolving]

NARRATIVE: CASE EVENT DATE: 20230908
